FAERS Safety Report 6403793-7 (Version None)
Quarter: 2009Q4

REPORT INFORMATION
  Report Type: 
  Country: None (occurrence: None)
  Receive Date: 20091016
  Receipt Date: 20091007
  Transmission Date: 20100525
  Serious: Yes (Hospitalization)
  Sender: FDA-Public Use
  Company Number: GB-JNJFOC-20090402182

PATIENT
  Sex: Female
  Weight: 45 kg

DRUGS (8)
  1. REMICADE [Suspect]
     Indication: RHEUMATOID ARTHRITIS
     Route: 042
     Dates: start: 20080320
  2. METHOTREXATE [Concomitant]
     Indication: RHEUMATOID ARTHRITIS
  3. PREDNISOLONE [Concomitant]
  4. ALENDRONATE SODIUM [Concomitant]
  5. DICLOFENAC [Concomitant]
  6. DIHYDROCODEINE BITARTRATE INJ [Concomitant]
  7. FOLIC ACID [Concomitant]
  8. OMEPRAZOLE [Concomitant]

REACTIONS (6)
  - ABDOMINAL SEPSIS [None]
  - CHOLECYSTITIS [None]
  - DUODENAL ULCER PERFORATION [None]
  - OSTEOARTHRITIS [None]
  - RECTAL HAEMORRHAGE [None]
  - SPINAL COMPRESSION FRACTURE [None]
